FAERS Safety Report 4616847-2 (Version None)
Quarter: 2005Q1

REPORT INFORMATION
  Report Type: 
  Country: None (occurrence: None)
  Receive Date: 20050321
  Receipt Date: 19990612
  Transmission Date: 20050727
  Serious: Yes (Hospitalization)
  Sender: FDA-Public Use
  Company Number: 7012

PATIENT
  Age: 77 Year
  Sex: Male

DRUGS (6)
  1. GLYCERYL TRINITRATE [Suspect]
     Indication: ANGINA PECTORIS
     Route: 060
     Dates: start: 19990506
  2. ASPIRIN [Concomitant]
  3. ATORVASTATIN CALCIUM [Concomitant]
  4. AMLODIPINE [Concomitant]
  5. LANSOPRAZOLE [Concomitant]
  6. ATENOLOL [Concomitant]

REACTIONS (2)
  - CIRCULATORY COLLAPSE [None]
  - HYPOTENSION [None]
